FAERS Safety Report 4806358-3 (Version None)
Quarter: 2005Q4

REPORT INFORMATION
  Report Type: 
  Country: None (occurrence: None)
  Receive Date: 20051021
  Receipt Date: 20051012
  Transmission Date: 20060501
  Serious: Yes (Other)
  Sender: FDA-Public Use
  Company Number: US-ROCHE-421127

PATIENT
  Age: 40 Year
  Sex: Male
  Weight: 98 kg

DRUGS (10)
  1. COPEGUS [Suspect]
     Indication: HEPATITIS C
     Route: 048
     Dates: start: 20050506
  2. PEG-INTRON [Suspect]
     Indication: HEPATITIS C
     Route: 065
     Dates: start: 20050506
  3. MULTI-VITAMIN [Concomitant]
     Route: 048
  4. PROZAC [Concomitant]
     Dosage: 10 MG.
     Route: 048
  5. SEROQUEL [Concomitant]
     Dosage: 25 MG.
     Route: 048
  6. TEGRETOL [Concomitant]
     Dosage: 100 MG.
     Route: 048
  7. TRAZODONE HCL [Concomitant]
     Dosage: 50 MG
     Route: 048
  8. TYLENOL W/ CODEINE [Concomitant]
     Dosage: 300-30MG
     Route: 048
  9. ULTRAM [Concomitant]
     Dosage: 50MG
     Route: 048
  10. CYMBALTA [Concomitant]
     Dosage: 20 MG DELAYED.
     Route: 048

REACTIONS (5)
  - ANAEMIA [None]
  - BLOOD GLUCOSE ABNORMAL [None]
  - CONVULSION [None]
  - HEPATOMEGALY [None]
  - LOSS OF CONSCIOUSNESS [None]
